FAERS Safety Report 14815326 (Version 1)
Quarter: 2018Q2

REPORT INFORMATION
  Report Type: Spontaneous
  Country: AU (occurrence: AU)
  Receive Date: 20180426
  Receipt Date: 20180426
  Transmission Date: 20180711
  Serious: Yes (Other)
  Sender: FDA-Public Use
  Company Number: AU-MYLANLABS-2018M1027175

PATIENT
  Sex: Female

DRUGS (1)
  1. C-FLOX 500 (CIPROFLOXACIN) [Suspect]
     Active Substance: CIPROFLOXACIN
     Indication: SKIN ULCER
     Dosage: 1 DF, BID

REACTIONS (3)
  - Rash pruritic [Unknown]
  - Feeling abnormal [None]
  - Thinking abnormal [Unknown]
